FAERS Safety Report 10252839 (Version 1)
Quarter: 2014Q2

REPORT INFORMATION
  Report Type: Report from Study
  Country: CA (occurrence: CA)
  Receive Date: 20140623
  Receipt Date: 20140623
  Transmission Date: 20141212
  Serious: Yes (Hospitalization, Other)
  Sender: FDA-Public Use
  Company Number: CA-ABBVIE-14P-028-1248739-00

PATIENT
  Sex: Male
  Weight: 70.37 kg

DRUGS (3)
  1. KALETRA 200/50 [Suspect]
     Indication: ANTIRETROVIRAL THERAPY
     Dosage: 200MG/50MG, TOTAL DAILY DOSE: 800MG/200MG
     Route: 048
     Dates: start: 20110107, end: 2014
  2. KALETRA 200/50 [Suspect]
     Dosage: 200MG/50MG, TOTAL DAILY DOSE: 800MG/200MG
     Route: 048
     Dates: start: 2014
  3. TRUVADA [Concomitant]
     Indication: HIV INFECTION
     Dosage: 200/300 MG
     Route: 048
     Dates: start: 20140613

REACTIONS (6)
  - Gastrointestinal bacterial infection [Recovered/Resolved]
  - Intestinal haemorrhage [Recovered/Resolved]
  - Nausea [Recovered/Resolved]
  - Tremor [Recovered/Resolved]
  - Dizziness [Recovered/Resolved]
  - Visual impairment [Recovered/Resolved]
